FAERS Safety Report 8852148 (Version 1)
Quarter: 2012Q4

REPORT INFORMATION
  Report Type: 
  Country: IT (occurrence: IT)
  Receive Date: 20121022
  Receipt Date: 20121022
  Transmission Date: 20130627
  Serious: Yes (Other)
  Sender: FDA-Public Use
  Company Number: IT-PFIZER INC-2012260151

PATIENT
  Age: 69 Year
  Sex: Male
  Weight: 56 kg

DRUGS (2)
  1. CISPLATIN [Suspect]
     Indication: LUNG CANCER
     Dosage: 130 mg, cyclic
     Route: 042
     Dates: start: 20120802, end: 20120827
  2. GEMZAR [Suspect]
     Indication: LUNG CANCER
     Dosage: 1600 mg, cyclic
     Route: 042
     Dates: start: 20120802, end: 20120904

REACTIONS (3)
  - Anaemia [Recovering/Resolving]
  - Febrile neutropenia [Recovering/Resolving]
  - Bronchopneumonia [Recovering/Resolving]
